FAERS Safety Report 6764415-9 (Version None)
Quarter: 2010Q2

REPORT INFORMATION
  Report Type: 
  Country: None (occurrence: None)
  Receive Date: 20100610
  Receipt Date: 20100607
  Transmission Date: 20101027
  Serious: Yes (Death, Hospitalization)
  Sender: FDA-Public Use
  Company Number: NL-ROCHE-678029

PATIENT
  Sex: Female
  Weight: 70 kg

DRUGS (8)
  1. TOCILIZUMAB [Suspect]
     Indication: RHEUMATOID ARTHRITIS
     Dosage: LAST DOSE PRIOR TO SAE: 04 JANUARY 2010.
     Route: 042
     Dates: start: 20090323, end: 20100105
  2. PREDNISOLONE [Concomitant]
     Dosage: FREQUENCY: 1XDD.
     Route: 048
     Dates: start: 20080702, end: 20091202
  3. PREDNISOLONE [Concomitant]
     Dosage: FREQUENCY: 1 X.
     Route: 048
     Dates: start: 20091202, end: 20100106
  4. KENACORT [Concomitant]
     Dosage: FREQUENCY: 1 X. ROUTE: IM.
     Dates: start: 20090520, end: 20090520
  5. KENACORT [Concomitant]
     Dosage: FREQUENCY: 1 X.  ROUTE: IM.
     Dates: start: 20090629, end: 20090629
  6. MELOXICAM [Concomitant]
     Dates: start: 20090204
  7. PLAQUENIL [Concomitant]
     Dates: start: 20080705
  8. ARAVA [Concomitant]
     Dosage: FREQUENCY: 1X DD.
     Route: 048
     Dates: start: 20031031, end: 20080705

REACTIONS (2)
  - ASTHENIA [None]
  - MYOCARDIAL INFARCTION [None]
